FAERS Safety Report 8190924-4 (Version None)
Quarter: 2012Q1

REPORT INFORMATION
  Report Type: 
  Country: None (occurrence: None)
  Receive Date: 20120307
  Receipt Date: 20120228
  Transmission Date: 20120608
  Serious: Yes (Hospitalization)
  Sender: FDA-Public Use
  Company Number: US-BAYER-2011-063819

PATIENT
  Age: 46 Year
  Sex: Female
  Weight: 129 kg

DRUGS (23)
  1. FLUCONAZOLE [Concomitant]
     Dosage: 150 MG, UNK
     Route: 048
     Dates: start: 20090822
  2. LYRICA [Concomitant]
     Dosage: 50 MG, QD
     Route: 048
     Dates: start: 20060524
  3. LOVAZO [Concomitant]
     Indication: BLOOD CHOLESTEROL ABNORMAL
     Dosage: 1 G, QID
     Route: 048
     Dates: start: 20090901, end: 20090920
  4. YASMIN [Suspect]
     Indication: CONTRACEPTION
     Dosage: UNK
     Dates: start: 20040528, end: 20070427
  5. YASMIN [Suspect]
     Indication: MENSTRUATION IRREGULAR
  6. VITAMIN B COMPLEX CAP [Concomitant]
     Route: 048
  7. ACETAMINOPHEN AND HYDROCODONE BITARTRATE [Concomitant]
     Dosage: UNK
     Route: 048
     Dates: start: 20090820
  8. LISINOPRIL [Concomitant]
     Indication: BLOOD PRESSURE ABNORMAL
     Dosage: UNK UNK, BID
     Route: 048
     Dates: start: 20090901, end: 20090920
  9. LOVAZO [Concomitant]
     Dosage: 1 G, QID
     Route: 048
     Dates: start: 20080624
  10. LYRICA [Concomitant]
     Indication: NEUROPATHY PERIPHERAL
     Dosage: 50 MG, BID
     Route: 048
     Dates: start: 20090901, end: 20090920
  11. AMITRIPTYLINE HCL [Concomitant]
     Indication: NEUROPATHY PERIPHERAL
     Dosage: 150 MG, QD
     Route: 048
     Dates: start: 20090901, end: 20090920
  12. MOTRIN [Concomitant]
     Indication: PAIN
     Dosage: 200 MG, QID
     Route: 048
     Dates: start: 20090901, end: 20090920
  13. YAZ [Suspect]
     Indication: CONTRACEPTION
     Dosage: UNK
     Dates: start: 20070401, end: 20090920
  14. THIAMINE HCL [Concomitant]
     Route: 048
  15. FUROSEMIDE [Concomitant]
     Dosage: 40 MG, UNK
     Route: 048
     Dates: start: 20090515
  16. TRICOR [Concomitant]
     Dosage: 145 MG, QD
     Route: 048
     Dates: start: 20090901, end: 20090920
  17. YAZ [Suspect]
     Indication: MENSTRUATION IRREGULAR
  18. LISINOPRIL AND HYDROCHLOROTHIAZIDE [Concomitant]
     Dosage: UNK
     Route: 048
     Dates: start: 20070509
  19. TRICOR [Concomitant]
     Indication: BLOOD CHOLESTEROL ABNORMAL
     Dosage: 145 MG, QD
     Route: 048
     Dates: start: 20080518
  20. ROBAXIN [Concomitant]
     Indication: PAIN
     Dosage: 750 MG, TID
     Route: 048
     Dates: start: 20090901, end: 20090920
  21. ROBAXIN [Concomitant]
     Dosage: 750 MG, TID
     Route: 048
     Dates: start: 20080731
  22. MULTI-VITAMIN [Concomitant]
     Route: 048
  23. AMITRIPTYLINE HCL [Concomitant]
     Dosage: 150 MG, QD
     Route: 048
     Dates: start: 20030122

REACTIONS (15)
  - HYPOXIA [None]
  - EMOTIONAL DISTRESS [None]
  - CHEST PAIN [None]
  - ERYTHEMA [None]
  - ANXIETY [None]
  - ANHEDONIA [None]
  - DEEP VEIN THROMBOSIS [None]
  - OEDEMA PERIPHERAL [None]
  - PAIN [None]
  - WHEEZING [None]
  - TACHYPNOEA [None]
  - PULMONARY EMBOLISM [None]
  - RENAL FAILURE [None]
  - DYSPNOEA [None]
  - TACHYCARDIA [None]
